FAERS Safety Report 16710956 (Version 6)
Quarter: 2022Q3

REPORT INFORMATION
  Report Type: Report from Study
  Country: TR (occurrence: None)
  Receive Date: 20190816
  Receipt Date: 20220709
  Transmission Date: 20221027
  Serious: Yes (Hospitalization)
  Sender: FDA-Public Use
  Company Number: TR-ROCHE-2379253

PATIENT
  Age: 56 Year
  Sex: Female
  Weight: 62 kg

DRUGS (14)
  1. ATEZOLIZUMAB [Suspect]
     Active Substance: ATEZOLIZUMAB
     Indication: Ovarian cancer
     Dosage: DATE OF MOST RECENT DOSE (1200MG) OF ATEZOLIZUMAB PRIOR TO SAE ONSET ON 24/APR/2019.?ON DAY 1 OF EAC
     Route: 042
     Dates: start: 20180207
  2. BEVACIZUMAB [Suspect]
     Active Substance: BEVACIZUMAB
     Indication: Ovarian cancer
     Dosage: DATE OF MOST RECENT DOSE OF BEVACIZUMAB (945 MG) PRIOR TO SAE ONSET ON 24/APR/2019.
     Route: 042
     Dates: start: 20180228
  3. PACLITAXEL [Suspect]
     Active Substance: PACLITAXEL
     Indication: Ovarian cancer
     Dosage: DATE OF MOST RECENT DOSE OF PACLITAXEL (300 MG) PRIOR TO AE ONSET ON 23/MAY/2018.?ON DAY 1 OF EACH 2
     Route: 042
     Dates: start: 20180207
  4. CARBOPLATIN [Suspect]
     Active Substance: CARBOPLATIN
     Indication: Ovarian cancer
     Dosage: DATE OF MOST RECENT DOSE OF CARBOPLATIN (780 MG) PRIOR TO SAE ONSET ON 23/MAY/2019.?DATE OF MOST REC
     Route: 042
     Dates: start: 20180207
  5. LEVOTHYROXINE SODIUM [Concomitant]
     Active Substance: LEVOTHYROXINE SODIUM
     Indication: Hypothyroidism
     Dates: start: 20181101
  6. ZYRTEC (TURKEY) [Concomitant]
     Indication: Rash
     Dates: start: 20190306
  7. PHENIRAMINE [Concomitant]
     Active Substance: PHENIRAMINE
     Indication: Rash
     Dates: start: 20190327
  8. PRIVIGEN [Concomitant]
     Active Substance: HUMAN IMMUNOGLOBULIN G
     Indication: Myopathy
     Dates: start: 20190801, end: 20190805
  9. PRIVIGEN [Concomitant]
     Active Substance: HUMAN IMMUNOGLOBULIN G
     Dates: start: 20191007, end: 20191011
  10. PRIVIGEN [Concomitant]
     Active Substance: HUMAN IMMUNOGLOBULIN G
     Dates: start: 20191205, end: 20191205
  11. PRIVIGEN [Concomitant]
     Active Substance: HUMAN IMMUNOGLOBULIN G
     Dates: start: 20191226, end: 20191226
  12. PRIVIGEN [Concomitant]
     Active Substance: HUMAN IMMUNOGLOBULIN G
     Dates: start: 20200210, end: 20200210
  13. PRIVIGEN [Concomitant]
     Active Substance: HUMAN IMMUNOGLOBULIN G
     Dates: start: 20200304, end: 20200304
  14. ENOXAPARIN SODIUM [Concomitant]
     Active Substance: ENOXAPARIN SODIUM
     Dates: start: 20190801, end: 20190808

REACTIONS (1)
  - Peripheral motor neuropathy [Recovered/Resolved]

NARRATIVE: CASE EVENT DATE: 20190807
